FAERS Safety Report 8418046-5 (Version None)
Quarter: 2012Q2

REPORT INFORMATION
  Report Type: 
  Country: None (occurrence: None)
  Receive Date: 20120607
  Receipt Date: 20120529
  Transmission Date: 20120825
  Serious: Yes (Hospitalization, Other)
  Sender: FDA-Public Use
  Company Number: DE-ABBOTT-12P-062-0940261-00

PATIENT
  Sex: Female
  Weight: 61 kg

DRUGS (4)
  1. HUMIRA [Suspect]
     Indication: RHEUMATOID ARTHRITIS
     Route: 058
     Dates: start: 20111101, end: 20120327
  2. CALCIUM [Concomitant]
     Indication: OSTEOPOROSIS
     Dosage: DAILY DOSE: 500MG
  3. PREDNISOLONE [Concomitant]
     Indication: RHEUMATOID ARTHRITIS
  4. METHOTREXATE [Concomitant]
     Indication: RHEUMATOID ARTHRITIS
     Dosage: 7.5 MG PER WEEK

REACTIONS (6)
  - PULMONARY MASS [None]
  - CHILLS [None]
  - PULMONARY HILUM MASS [None]
  - ATELECTASIS [None]
  - LUNG INFILTRATION [None]
  - PRODUCTIVE COUGH [None]
